FAERS Safety Report 8546824-0 (Version None)
Quarter: 2012Q3

REPORT INFORMATION
  Report Type: 
  Country: None (occurrence: None)
  Receive Date: 20120727
  Receipt Date: 20120207
  Transmission Date: 20120928
  Serious: No
  Sender: FDA-Public Use
  Company Number: US-ASTRAZENECA-2012SE08484

PATIENT
  Age: 63 Year
  Sex: Male
  Weight: 163.3 kg

DRUGS (2)
  1. KLONIPINE [Concomitant]
  2. SEROQUEL XR [Suspect]
     Indication: BIPOLAR I DISORDER
     Route: 048
     Dates: start: 20100101

REACTIONS (8)
  - INSOMNIA [None]
  - DRUG DOSE OMISSION [None]
  - BEDRIDDEN [None]
  - SLEEP APNOEA SYNDROME [None]
  - WEIGHT INCREASED [None]
  - MALAISE [None]
  - HALLUCINATION [None]
  - DEPRESSION [None]
